FAERS Safety Report 25135588 (Version 1)
Quarter: 2025Q1

REPORT INFORMATION
  Report Type: Spontaneous
  Country: US (occurrence: US)
  Receive Date: 20250328
  Receipt Date: 20250328
  Transmission Date: 20250408
  Serious: Yes (Other)
  Sender: XERIS PHARMACEUTICALS
  Company Number: US-BRIAN CONNER SVP QUALITY AND CHIEF COMPLIANCE OFFICER-2024XER00575

PATIENT
  Sex: Female

DRUGS (10)
  1. RECORLEV [Suspect]
     Active Substance: LEVOKETOCONAZOLE
     Indication: Cushing^s syndrome
     Dosage: 150 MG, 2X/DAY
     Route: 048
     Dates: start: 202410, end: 2024
  2. RECORLEV [Suspect]
     Active Substance: LEVOKETOCONAZOLE
     Dosage: 1  TABLET (150 MG), 1X/DAY IN THE AM WITH 2 TABLETS IN PM
     Route: 048
     Dates: start: 2024, end: 2024
  3. RECORLEV [Suspect]
     Active Substance: LEVOKETOCONAZOLE
     Dosage: 2 TABLETS (300 MG), 1X/DAY IN THE NIGHT; WITH 1 TABLET IN MORNING
     Route: 048
     Dates: start: 2024, end: 2024
  4. RECORLEV [Suspect]
     Active Substance: LEVOKETOCONAZOLE
     Dosage: 2 TABLETS (300 MG), 2X/DAY
     Route: 048
     Dates: start: 2024, end: 2024
  5. RECORLEV [Suspect]
     Active Substance: LEVOKETOCONAZOLE
     Dosage: 1 TABLETS (150 MG), 3X/DAY
     Route: 048
     Dates: start: 202411, end: 20241112
  6. RECORLEV [Suspect]
     Active Substance: LEVOKETOCONAZOLE
     Dosage: 1 TABLET (150 MG), 3X/DAY
     Route: 048
     Dates: start: 20241113
  7. OZEMPIC [Suspect]
     Active Substance: SEMAGLUTIDE
  8. LEQVIO [Concomitant]
     Active Substance: INCLISIRAN SODIUM
  9. UNSPECIFIED NEW MEDICATION [Concomitant]
  10. UNSPECIFIED EYE INJECTIONS [Concomitant]

REACTIONS (20)
  - Adrenal gland operation [Unknown]
  - Lethargy [Not Recovered/Not Resolved]
  - Chapped lips [Not Recovered/Not Resolved]
  - Drug effect less than expected [Not Recovered/Not Resolved]
  - Lip exfoliation [Not Recovered/Not Resolved]
  - Nightmare [Not Recovered/Not Resolved]
  - Muscle spasms [Not Recovered/Not Resolved]
  - Skin exfoliation [Not Recovered/Not Resolved]
  - Lip dry [Not Recovered/Not Resolved]
  - Constipation [Not Recovered/Not Resolved]
  - Cortisol increased [Not Recovered/Not Resolved]
  - Dehydration [Not Recovered/Not Resolved]
  - Dyspepsia [Not Recovered/Not Resolved]
  - Urinary tract infection [Not Recovered/Not Resolved]
  - Headache [Not Recovered/Not Resolved]
  - Nausea [Not Recovered/Not Resolved]
  - Fatigue [Not Recovered/Not Resolved]
  - Dry skin [Not Recovered/Not Resolved]
  - Abdominal pain upper [Not Recovered/Not Resolved]
  - Dizziness [Not Recovered/Not Resolved]

NARRATIVE: CASE EVENT DATE: 20240101
